FAERS Safety Report 13492099 (Version 9)
Quarter: 2022Q1

REPORT INFORMATION
  Report Type: Spontaneous
  Country: US (occurrence: US)
  Receive Date: 20170427
  Receipt Date: 20220208
  Transmission Date: 20220423
  Serious: Yes (Other)
  Sender: FDA-Public Use
  Company Number: US-009507513-1704USA006517

PATIENT
  Sex: Female

DRUGS (8)
  1. INTRON A [Suspect]
     Active Substance: INTERFERON ALFA-2B
     Indication: Malignant melanoma
     Dosage: STRENGTH: 18 MILION IU/ 3 ML, DOSE: 750 000 UNITS (0.04 ML), DAILY (QD)
  2. INTRON A [Suspect]
     Active Substance: INTERFERON ALFA-2B
     Indication: Pleural mesothelioma
     Dosage: STRENGTH: 18 MILION IU/ 3 ML, DOSE: 750 000 UNITS (12.5 UNITS ON SYRINGE), DAILY (QD)
     Route: 058
     Dates: start: 20170419
  3. INTRON A [Suspect]
     Active Substance: INTERFERON ALFA-2B
     Dosage: STRENGTH: 18 MILION IU/ 3 ML, DOSE: 750 000 UNITS (12.5 UNITS ON SYRINGE), DAILY (QD)
     Route: 058
  4. INTRON A [Suspect]
     Active Substance: INTERFERON ALFA-2B
     Dosage: STRENGTH: 18 MILION IU/ 3 ML, DOSE: 750 000 UNITS (12.5 UNITS ON SYRINGE), DAILY (QD)
     Route: 058
     Dates: start: 2020
  5. INTRON A [Suspect]
     Active Substance: INTERFERON ALFA-2B
     Indication: Pleural mesothelioma
     Dosage: STRENGTH: 25 MILION IU/ 2.5 ML, DOSE: 750000 UNITS (0.075 ML OR 7.5 UNITS), EVERY NIGHT AT BEDTIME,
     Route: 058
     Dates: start: 20170602
  6. INTRON A [Suspect]
     Active Substance: INTERFERON ALFA-2B
     Dosage: STRENGTH: 25 MU, 2.5 ML MDV, 750,000 UNITS (0.075ML OR 7.5 UNITS) EVERY NIGHT AT BEDTIME.DISCARD 30
     Route: 058
     Dates: start: 20170413
  7. INTRON A [Suspect]
     Active Substance: INTERFERON ALFA-2B
     Dosage: STRENGTH: 25 MU, 2.5 ML MDV, 750,000 UNITS (0.075ML OR 7.5 UNITS) EVERY NIGHT AT BEDTIME.DISCARD 30
     Route: 058
  8. INTRON A [Suspect]
     Active Substance: INTERFERON ALFA-2B
     Indication: Pleural mesothelioma
     Dosage: STRENTH 10 MU SDV : DOSE 750,000 UNITS (0,075 MILLILITER), EVERY NIGHT AT BEDTIME
     Route: 058
     Dates: end: 20220121

REACTIONS (15)
  - Neuropathy peripheral [Unknown]
  - Hair disorder [Unknown]
  - Adverse event [Unknown]
  - Adverse event [Not Recovered/Not Resolved]
  - Muscle spasms [Unknown]
  - Nausea [Unknown]
  - Nausea [Unknown]
  - Product use in unapproved indication [Unknown]
  - Product dose omission issue [Unknown]
  - Product dose omission issue [Unknown]
  - Product dose omission issue [Unknown]
  - Product dose omission issue [Unknown]
  - Product dose omission issue [Unknown]
  - Product dose omission issue [Unknown]
  - Product dose omission issue [Unknown]

NARRATIVE: CASE EVENT DATE: 20170101
